FAERS Safety Report 9287107 (Version 1)
Quarter: 2013Q2

REPORT INFORMATION
  Report Type: Spontaneous
  Country: US (occurrence: US)
  Receive Date: 20130513
  Receipt Date: 20130513
  Transmission Date: 20140414
  Serious: No
  Sender: FDA-Public Use
  Company Number: US-PFIZER INC-2013147872

PATIENT
  Sex: 0

DRUGS (1)
  1. LYRICA [Suspect]
     Indication: CROHN^S DISEASE
     Dosage: UNK

REACTIONS (2)
  - Off label use [Unknown]
  - Frustration [Unknown]
